FAERS Safety Report 11247828 (Version 1)
Quarter: 2015Q3

REPORT INFORMATION
  Report Type: Report from Study
  Country: US (occurrence: US)
  Receive Date: 20150708
  Receipt Date: 20150708
  Transmission Date: 20151125
  Serious: Yes (Hospitalization)
  Sender: FDA-Public Use
  Company Number: US-ACTELION-A-US2012-65830

PATIENT
  Age: 60 Year
  Sex: Female

DRUGS (3)
  1. TRACLEER [Suspect]
     Active Substance: BOSENTAN
     Indication: PULMONARY ARTERIAL HYPERTENSION
     Dosage: UNK
     Route: 048
  2. SILDENAFIL. [Concomitant]
     Active Substance: SILDENAFIL
  3. TRACLEER [Suspect]
     Active Substance: BOSENTAN
     Dosage: UNK
     Route: 048

REACTIONS (11)
  - Insomnia [Unknown]
  - Wheezing [Unknown]
  - Dizziness postural [Unknown]
  - Swelling [Unknown]
  - Dyspnoea [Unknown]
  - Cough [Unknown]
  - Dyspnoea exertional [Unknown]
  - Chest pain [Unknown]
  - Dizziness [Unknown]
  - Weight increased [Unknown]
  - Feeling abnormal [Unknown]
